FAERS Safety Report 5324118-4 (Version None)
Quarter: 2007Q2

REPORT INFORMATION
  Report Type: 
  Country: None (occurrence: None)
  Receive Date: 20070514
  Receipt Date: 20060706
  Transmission Date: 20071010
  Serious: No
  Sender: FDA-Public Use
  Company Number: A0611349A

PATIENT
  Age: 84 Year
  Sex: Female

DRUGS (1)
  1. NABUMETONE [Suspect]
     Route: 048
     Dates: start: 20060621

REACTIONS (1)
  - DIARRHOEA [None]
